FAERS Safety Report 5045908-1 (Version None)
Quarter: 2006Q3

REPORT INFORMATION
  Report Type: 
  Country: None (occurrence: None)
  Receive Date: 20060710
  Receipt Date: 20060629
  Transmission Date: 20061208
  Serious: Yes (Other)
  Sender: FDA-Public Use
  Company Number: US-JNJFOC-20060701002

PATIENT
  Age: 36 Year
  Sex: Female
  Weight: 48.99 kg

DRUGS (8)
  1. DURAGESIC-100 [Suspect]
     Route: 062
  2. DURAGESIC-100 [Suspect]
     Route: 062
  3. DURAGESIC-100 [Suspect]
     Route: 062
  4. DURAGESIC-100 [Suspect]
     Indication: PAIN
     Route: 062
  5. HYDROCODONE [Concomitant]
     Indication: BREAKTHROUGH PAIN
     Dosage: FOUR TIMES PER DAY/ORAL
  6. KLONIPIN [Concomitant]
  7. TOPAMAX [Concomitant]
     Indication: NEURALGIA
  8. ROBAXIN [Concomitant]
     Indication: MUSCLE SPASMS

REACTIONS (6)
  - DRUG ADMINISTRATION ERROR [None]
  - DRUG WITHDRAWAL SYNDROME [None]
  - PARAESTHESIA [None]
  - SUICIDAL IDEATION [None]
  - THERAPEUTIC RESPONSE DECREASED [None]
  - WEIGHT DECREASED [None]
